FAERS Safety Report 8131173-5 (Version None)
Quarter: 2012Q1

REPORT INFORMATION
  Report Type: 
  Country: None (occurrence: None)
  Receive Date: 20120209
  Receipt Date: 20120209
  Transmission Date: 20120608
  Serious: Yes (Life-Threatening, Disabling, Other)
  Sender: FDA-Public Use
  Company Number: None

PATIENT
  Sex: Female
  Weight: 79.3795 kg

DRUGS (1)
  1. ZALEPLON [Suspect]
     Indication: SOMNOLENCE
     Dosage: GENERIC FOR SONATA 10MG 1 NIGHTLY
     Dates: start: 20091230, end: 20100620

REACTIONS (5)
  - DYSLEXIA [None]
  - FALL [None]
  - AMNESIA [None]
  - CONFUSIONAL STATE [None]
  - VERTIGO [None]
